FAERS Safety Report 4432595-6 (Version None)
Quarter: 2004Q3

REPORT INFORMATION
  Report Type: 
  Country: None (occurrence: None)
  Receive Date: 20040820
  Receipt Date: 20040809
  Transmission Date: 20050211
  Serious: Yes (Other)
  Sender: FDA-Public Use
  Company Number: 2004054705

PATIENT

DRUGS (4)
  1. NEURONTIN [Suspect]
     Indication: ILL-DEFINED DISORDER
  2. VALDECOXIB [Suspect]
     Indication: ILL-DEFINED DISORDER
  3. VICOPROFEN [Suspect]
     Indication: ILL-DEFINED DISORDER
  4. ALL OTHER THERAPEUTIC PRODUCTS (ALL OTHER THERAPEUTIC PRODUCTS) [Suspect]
     Indication: ILL-DEFINED DISORDER

REACTIONS (6)
  - BONE DENSITY DECREASED [None]
  - CARCINOMA [None]
  - DIABETES MELLITUS [None]
  - FIBROMYALGIA [None]
  - OSTEOARTHRITIS [None]
  - SPINAL OPERATION [None]
